FAERS Safety Report 14527965 (Version 1)
Quarter: 2018Q1

REPORT INFORMATION
  Report Type: Spontaneous
  Country: CA (occurrence: CA)
  Receive Date: 20180213
  Receipt Date: 20180213
  Transmission Date: 20180509
  Serious: Yes (Death, Other)
  Sender: FDA-Public Use
  Company Number: CA-AMGEN-CANSP2018019936

PATIENT

DRUGS (1)
  1. KYPROLIS [Suspect]
     Active Substance: CARFILZOMIB
     Indication: PLASMA CELL MYELOMA
     Dosage: UNK
     Route: 065
     Dates: start: 201801

REACTIONS (2)
  - Cerebrovascular accident [Unknown]
  - Death [Fatal]

NARRATIVE: CASE EVENT DATE: 2018
